FAERS Safety Report 7334945-X (Version None)
Quarter: 2011Q1

REPORT INFORMATION
  Report Type: 
  Country: None (occurrence: None)
  Receive Date: 20110307
  Receipt Date: 20110224
  Transmission Date: 20110831
  Serious: Yes (Hospitalization, Other)
  Sender: FDA-Public Use
  Company Number: US-ROCHE-756458

PATIENT
  Sex: Female

DRUGS (4)
  1. DETROL LA [Concomitant]
     Route: 048
  2. ALTACE [Concomitant]
     Indication: BLOOD PRESSURE
     Route: 048
  3. BONIVA [Suspect]
     Indication: OSTEOPOROSIS
     Dosage: DRUG STARTED IN FALL
     Route: 048
     Dates: start: 20100901, end: 20110201
  4. REGLAN [Concomitant]
     Route: 048

REACTIONS (3)
  - DIZZINESS [None]
  - OESOPHAGEAL STENOSIS [None]
  - DYSPEPSIA [None]
